FAERS Safety Report 6284163-1 (Version None)
Quarter: 2009Q3

REPORT INFORMATION
  Report Type: 
  Country: None (occurrence: None)
  Receive Date: 20090727
  Receipt Date: 20090717
  Transmission Date: 20100115
  Serious: Yes (Life-Threatening)
  Sender: FDA-Public Use
  Company Number: US-JNJFOC-20090704078

PATIENT
  Sex: Male

DRUGS (3)
  1. REMICADE [Suspect]
     Indication: ERYTHRODERMIC PSORIASIS
     Route: 042
  2. REMICADE [Suspect]
     Indication: PSORIASIS
     Route: 042
  3. REMICADE [Suspect]
     Indication: PSORIATIC ARTHROPATHY
     Route: 042

REACTIONS (1)
  - HEPATOSPLENIC T-CELL LYMPHOMA [None]
